FAERS Safety Report 5383059-7 (Version None)
Quarter: 2007Q2

REPORT INFORMATION
  Report Type: 
  Country: None (occurrence: None)
  Receive Date: 20070629
  Receipt Date: 20061222
  Transmission Date: 20071010
  Serious: Yes (Hospitalization, Other)
  Sender: FDA-Public Use
  Company Number: US20611001436

PATIENT
  Age: 62 Year
  Sex: Male

DRUGS (2)
  1. HUMALOG [Suspect]
     Indication: DIABETES MELLITUS
     Dosage: 60 U
     Dates: start: 20051101
  2. LANTUS [Concomitant]

REACTIONS (9)
  - AMNESIA [None]
  - BLINDNESS TRANSIENT [None]
  - BLOOD GLUCOSE INCREASED [None]
  - DRUG INEFFECTIVE [None]
  - FURUNCLE [None]
  - INJECTION SITE ABSCESS [None]
  - INJECTION SITE URTICARIA [None]
  - PSORIASIS [None]
  - STAPHYLOCOCCAL INFECTION [None]
